FAERS Safety Report 5083033-4 (Version None)
Quarter: 2006Q3

REPORT INFORMATION
  Report Type: 
  Country: None (occurrence: None)
  Receive Date: 20060814
  Receipt Date: 20060728
  Transmission Date: 20061208
  Serious: Yes (Death)
  Sender: FDA-Public Use
  Company Number: ES-2006-020710

PATIENT
  Age: 27 Year
  Sex: 0

DRUGS (1)
  1. BETAFERON (INTERFERON BETA 1B)INJECTION, 250?G [Suspect]
     Indication: RELAPSING-REMITTING MULTIPLE SCLEROSIS
     Dosage: 8 MIU, EVERY 2D, SUBCUTANEOUS
     Route: 058
     Dates: start: 20030203

REACTIONS (1)
  - DEATH [None]
